FAERS Safety Report 16361568 (Version 1)
Quarter: 2019Q3

REPORT INFORMATION
  Report Type: Spontaneous
  Country: US (occurrence: US)
  Receive Date: 20190524
  Receipt Date: 20190524
  Transmission Date: 20191004
  Serious: Yes (Life-Threatening, Hospitalization, Disabling)
  Sender: FDA-Public Use
  Company Number: None

PATIENT
  Age: 39 Year
  Sex: Female
  Weight: 60.75 kg

DRUGS (1)
  1. KYBELLA [Suspect]
     Active Substance: DEOXYCHOLIC ACID
     Dates: start: 20190329

REACTIONS (16)
  - Lymphadenopathy [None]
  - Bone loss [None]
  - Muscle disorder [None]
  - Abscess oral [None]
  - Tooth disorder [None]
  - Arterial occlusive disease [None]
  - Muscle atrophy [None]
  - Skin exfoliation [None]
  - Rash erythematous [None]
  - Injection site pain [None]
  - Breast cyst [None]
  - Coronary artery perforation [None]
  - Skin laceration [None]
  - Splenic rupture [None]
  - Spinal osteoarthritis [None]
  - Burning sensation [None]

NARRATIVE: CASE EVENT DATE: 20190329
